FAERS Safety Report 4355449-2 (Version None)
Quarter: 2004Q2

REPORT INFORMATION
  Report Type: 
  Country: None (occurrence: None)
  Receive Date: 20040510
  Receipt Date: 20040409
  Transmission Date: 20050107
  Serious: Yes (Life-Threatening, Hospitalization, Disabling)
  Sender: FDA-Public Use
  Company Number: JP-MERCK-0404USA01285

PATIENT
  Age: 45 Year
  Sex: Female

DRUGS (3)
  1. PEPCID [Suspect]
     Indication: CEREBRAL HAEMORRHAGE
     Route: 042
     Dates: start: 20040328, end: 20040401
  2. PERDIPINA [Concomitant]
     Route: 041
     Dates: start: 20040328, end: 20040401
  3. EXCEGRAN [Suspect]
     Route: 048
     Dates: start: 20040328, end: 20040331

REACTIONS (3)
  - HEPATIC FUNCTION ABNORMAL [None]
  - STEVENS-JOHNSON SYNDROME [None]
  - TRANSAMINASES INCREASED [None]
